FAERS Safety Report 4882991-8 (Version None)
Quarter: 2006Q1

REPORT INFORMATION
  Report Type: 
  Country: None (occurrence: None)
  Receive Date: 20060113
  Receipt Date: 20051223
  Transmission Date: 20060701
  Serious: Yes (Other)
  Sender: FDA-Public Use
  Company Number: GB200512002924

PATIENT
  Age: 13 Year
  Sex: Male
  Weight: 44 kg

DRUGS (1)
  1. ATOMOXETINE HYDROCHLORIDE(ATOMOXETINE HYDROCHLORIDE UNKNOWN FORMULATIO [Suspect]
     Indication: ATTENTION DEFICIT/HYPERACTIVITY DISORDER
     Dosage: 50 MG, DAILY (1/D), ORAL
     Route: 048
     Dates: start: 20030101

REACTIONS (1)
  - HEPATITIS [None]
